FAERS Safety Report 17253356 (Version 1)
Quarter: 2020Q1

REPORT INFORMATION
  Report Type: Spontaneous
  Country: US (occurrence: US)
  Receive Date: 20200109
  Receipt Date: 20200109
  Transmission Date: 20200409
  Serious: Yes (Death)
  Sender: FDA-Public Use
  Company Number: NVSC2020US003311

PATIENT
  Age: 71 Year
  Sex: Male

DRUGS (2)
  1. VORICONAZOLE. [Suspect]
     Active Substance: VORICONAZOLE
     Indication: FUNGAL INFECTION
     Dosage: UNK
     Route: 065
  2. PREDNISONE. [Suspect]
     Active Substance: PREDNISONE
     Indication: ACUTE GRAFT VERSUS HOST DISEASE
     Dosage: 20 MG, QD
     Route: 065

REACTIONS (8)
  - Strongyloidiasis [Fatal]
  - Hypotension [Fatal]
  - Respiratory failure [Fatal]
  - Mucormycosis [Fatal]
  - Dyspnoea [Fatal]
  - Petechiae [Fatal]
  - Anaemia [Fatal]
  - Tachycardia [Fatal]
